FAERS Safety Report 6948676 (Version 1)
Quarter: 2020Q3

REPORT INFORMATION
  Report Type: Report from Study
  Country: US (occurrence: US)
  Receive Date: 20090323
  Receipt Date: 20090323
  Transmission Date: 20201104
  Serious: Yes (Other)
  Sender: FDA-Public Use
  Company Number: US-ROCHE-621455

PATIENT
  Age: 65 Year
  Sex: Female

DRUGS (3)
  1. IBANDRONIC ACID. [Suspect]
     Active Substance: IBANDRONIC ACID
     Indication: OSTEOPOROSIS
     Route: 065
     Dates: end: 200812
  2. VITAMIN [Concomitant]
     Dosage: DRUG REPORTED AS: VITAMINS.
  3. ESTRACE [Concomitant]
     Active Substance: ESTRADIOL

REACTIONS (1)
  - Thrombosis [Unknown]

NARRATIVE: CASE EVENT DATE: 20081201
